FAERS Safety Report 12531803 (Version 1)
Quarter: 2016Q3

REPORT INFORMATION
  Report Type: Spontaneous
  Country: US (occurrence: US)
  Receive Date: 20160706
  Receipt Date: 20160706
  Transmission Date: 20161109
  Serious: No
  Sender: FDA-Public Use
  Company Number: US-PFIZER INC-2016295437

PATIENT

DRUGS (1)
  1. TIKOSYN [Suspect]
     Active Substance: DOFETILIDE

REACTIONS (1)
  - Upper respiratory tract infection [Unknown]
